FAERS Safety Report 13118843 (Version 1)
Quarter: 2017Q1

REPORT INFORMATION
  Report Type: Spontaneous
  Country: GB (occurrence: GB)
  Receive Date: 20170116
  Receipt Date: 20170116
  Transmission Date: 20170428
  Serious: Yes (Other)
  Sender: FDA-Public Use
  Company Number: GB-FRESENIUS KABI-FK201700356

PATIENT
  Age: 59 Year
  Sex: Male

DRUGS (17)
  1. CODEINE [Concomitant]
     Active Substance: CODEINE
  2. DIGOXIN. [Concomitant]
     Active Substance: DIGOXIN
  3. FOSFOMYCIN [Concomitant]
     Active Substance: FOSFOMYCIN
  4. PARACETAMOL [Concomitant]
     Active Substance: ACETAMINOPHEN
  5. CHLORPHENAMINE [Concomitant]
     Active Substance: CHLORPHENIRAMINE MALEATE
  6. HUMULIN M3 [Concomitant]
     Active Substance: INSULIN HUMAN
  7. HYDROXOCOBALAMIN [Concomitant]
     Active Substance: HYDROXOCOBALAMIN
  8. ATORVASTATIN [Concomitant]
     Active Substance: ATORVASTATIN
  9. BISOPROLOL [Concomitant]
     Active Substance: BISOPROLOL
  10. LANSOPRAZOLE. [Concomitant]
     Active Substance: LANSOPRAZOLE
  11. LINEZOLID (MANUFACTURER UNKNOWN) [Suspect]
     Active Substance: LINEZOLID
     Indication: PRODUCT USED FOR UNKNOWN INDICATION
     Route: 042
     Dates: start: 20161016, end: 20161028
  12. ATENOLOL. [Concomitant]
     Active Substance: ATENOLOL
  13. LOSARTAN. [Concomitant]
     Active Substance: LOSARTAN
  14. LINEZOLID. [Suspect]
     Active Substance: LINEZOLID
     Indication: PRODUCT USED FOR UNKNOWN INDICATION
     Route: 048
     Dates: start: 20161110, end: 20161129
  15. LIXISENATIDE [Concomitant]
     Active Substance: LIXISENATIDE
  16. METFORMIN [Concomitant]
     Active Substance: METFORMIN HYDROCHLORIDE
  17. ASPIRIN. [Concomitant]
     Active Substance: ASPIRIN

REACTIONS (2)
  - Streptococcal infection [Unknown]
  - Chromaturia [Not Recovered/Not Resolved]

NARRATIVE: CASE EVENT DATE: 20161028
